FAERS Safety Report 10426603 (Version 1)
Quarter: 2014Q3

REPORT INFORMATION
  Report Type: Spontaneous
  Country: US (occurrence: None)
  Receive Date: 20140902
  Receipt Date: 20140902
  Transmission Date: 20150326
  Serious: Yes (Disabling)
  Sender: FDA-Public Use
  Company Number: None

PATIENT
  Age: 80 Year
  Sex: Female
  Weight: 68.04 kg

DRUGS (1)
  1. PROLIA [Suspect]
     Active Substance: DENOSUMAB
     Indication: OSTEOPOROSIS
     Dosage: ONE SHOT?ONE EVERY 6 MONTHS?INTO THE MUSCLE
     Route: 030
     Dates: start: 20140808, end: 20140829

REACTIONS (6)
  - Impaired driving ability [None]
  - Dizziness [None]
  - Diverticulum [None]
  - Musculoskeletal pain [None]
  - Pain in extremity [None]
  - Swelling [None]

NARRATIVE: CASE EVENT DATE: 20140809
